FAERS Safety Report 4522497-9 (Version None)
Quarter: 2004Q4

REPORT INFORMATION
  Report Type: 
  Country: None (occurrence: None)
  Receive Date: 20041207
  Receipt Date: 20041119
  Transmission Date: 20050328
  Serious: Yes (Other)
  Sender: FDA-Public Use
  Company Number: USA041184306

PATIENT
  Age: 56 Year
  Sex: Female

DRUGS (2)
  1. PROZAC [Suspect]
     Indication: DEPRESSION
     Dates: start: 19930101
  2. CODEINE [Concomitant]

REACTIONS (23)
  - CONDITION AGGRAVATED [None]
  - DECREASED ACTIVITY [None]
  - DEPRESSION [None]
  - DIARRHOEA [None]
  - EATING DISORDER [None]
  - ENDODONTIC PROCEDURE [None]
  - FAECAL INCONTINENCE [None]
  - FOOT OPERATION [None]
  - HYPERHIDROSIS [None]
  - HYPERSENSITIVITY [None]
  - INFECTION [None]
  - INTERVERTEBRAL DISC PROTRUSION [None]
  - LOSS OF CONSCIOUSNESS [None]
  - MALNUTRITION [None]
  - MOVEMENT DISORDER [None]
  - NAUSEA [None]
  - NEUROPATHY PERIPHERAL [None]
  - PAIN [None]
  - PROCEDURAL COMPLICATION [None]
  - RASH [None]
  - ROAD TRAFFIC ACCIDENT [None]
  - SCIATICA [None]
  - TOOTH DISORDER [None]
